FAERS Safety Report 22952691 (Version 3)
Quarter: 2023Q4

REPORT INFORMATION
  Report Type: Spontaneous
  Country: US (occurrence: US)
  Receive Date: 20230918
  Receipt Date: 20231005
  Transmission Date: 20240110
  Serious: Yes (Hospitalization, Other)
  Sender: FDA-Public Use
  Company Number: US-HIKMA PHARMACEUTICALS USA INC.-US-H14001-23-64967

PATIENT

DRUGS (3)
  1. PROPOFOL [Suspect]
     Active Substance: PROPOFOL
     Indication: General anaesthesia
     Dosage: UNKNOWN
     Route: 042
  2. FENTANYL [Concomitant]
     Active Substance: FENTANYL
     Indication: General anaesthesia
     Dosage: UNKNOWN
     Route: 065
  3. LIDOCAINE HYDROCHLORIDE [Concomitant]
     Active Substance: LIDOCAINE HYDROCHLORIDE
     Indication: General anaesthesia
     Dosage: UNKNOWN
     Route: 065

REACTIONS (1)
  - Cutaneous lupus erythematosus [Recovered/Resolved]
